FAERS Safety Report 16637796 (Version 1)
Quarter: 2019Q3

REPORT INFORMATION
  Report Type: Spontaneous
  Country: US (occurrence: US)
  Receive Date: 20190614
  Receipt Date: 20190614
  Transmission Date: 20191004
  Serious: No
  Sender: FDA-Public Use
  Company Number: None

PATIENT
  Age: 55 Year
  Sex: Female

DRUGS (1)
  1. ENBREL [Suspect]
     Active Substance: ETANERCEPT
     Indication: RHEUMATOID ARTHRITIS
     Dates: start: 20091201, end: 20190525

REACTIONS (4)
  - Blister [None]
  - Rash papular [None]
  - Drug ineffective [None]
  - Red blood cell sedimentation rate increased [None]

NARRATIVE: CASE EVENT DATE: 20190614
